FAERS Safety Report 4365715-2 (Version None)
Quarter: 2004Q2

REPORT INFORMATION
  Report Type: 
  Country: None (occurrence: None)
  Receive Date: 20040526
  Receipt Date: 20040526
  Transmission Date: 20050107
  Serious: Yes (Life-Threatening, Hospitalization)
  Sender: FDA-Public Use
  Company Number: None

PATIENT
  Age: 66 Year
  Sex: Female
  Weight: 77 kg

DRUGS (9)
  1. RAPAMUNE [Suspect]
     Dosage: 6 MG PO QD
     Route: 048
     Dates: start: 20040207, end: 20040518
  2. BUMEX [Concomitant]
  3. PREDNISONE [Concomitant]
  4. TRIMETHOPRIM + SULFAMETHOXAZOLE [Concomitant]
  5. PROCARDIA XL [Concomitant]
  6. LOPRESSOR [Concomitant]
  7. DITROPAN XL [Concomitant]
  8. PROGRAF [Concomitant]
  9. HUMULIN 70/30 [Concomitant]

REACTIONS (3)
  - DYSPNOEA [None]
  - DYSPNOEA EXERTIONAL [None]
  - ORTHOPNOEA [None]
